FAERS Safety Report 17221905 (Version 3)
Quarter: 2022Q4

REPORT INFORMATION
  Report Type: Spontaneous
  Country: US (occurrence: None)
  Receive Date: 20200101
  Receipt Date: 20221014
  Transmission Date: 20230113
  Serious: Yes (Other)
  Sender: FDA-Public Use
  Company Number: 2019SF90267

PATIENT
  Age: 689 Month
  Sex: Female
  Weight: 127.9 kg

DRUGS (98)
  1. NEXIUM 24HR [Suspect]
     Active Substance: ESOMEPRAZOLE MAGNESIUM
     Indication: Gastrooesophageal reflux disease
     Route: 048
  2. PREVACID [Suspect]
     Active Substance: LANSOPRAZOLE
     Indication: Gastrooesophageal reflux disease
     Dosage: APPROXIMATELY 199630.0MG UNKNOWN
     Route: 065
  3. PREVACID [Suspect]
     Active Substance: LANSOPRAZOLE
     Indication: Gastrooesophageal reflux disease
     Dosage: GENERIC, APPROXIMATELY 19963.0MG UNKNOWN
     Route: 065
  4. ZANTAC [Concomitant]
     Active Substance: RANITIDINE HYDROCHLORIDE
     Indication: Gastrooesophageal reflux disease
     Dosage: APPROXIMATELY 1975
  5. ZANTAC [Concomitant]
     Active Substance: RANITIDINE HYDROCHLORIDE
     Indication: Gastrooesophageal reflux disease
     Dosage: ZANTAC 150 (PRESCRIPTION), APPROXIMATELY
  6. BENADRYL [Concomitant]
     Active Substance: DIPHENHYDRAMINE HYDROCHLORIDE
     Indication: Dialysis
     Dosage: APPROXIMATELY 2008
  7. SENSIPOR [Concomitant]
     Indication: Dialysis
     Dosage: APPROXIMATELY 2008
  8. RENVELA [Concomitant]
     Active Substance: SEVELAMER CARBONATE
     Indication: Dialysis
     Dosage: APPROXIMATELY 2008
  9. CARVEDIROL [Concomitant]
     Indication: Dialysis
     Dosage: APPROXIMATELY 2008
  10. VITAMINS [Concomitant]
     Active Substance: VITAMINS
     Indication: Dialysis
     Dosage: APPROXIMATELY 2008
  11. TUMS [Concomitant]
     Active Substance: CALCIUM CARBONATE
     Dosage: 2 TABLETS AS REQUIRED
  12. ZEMPLAR [Concomitant]
     Active Substance: PARICALCITOL
  13. HYDROXYZINE [Concomitant]
     Active Substance: HYDROXYZINE HYDROCHLORIDE
  14. ONDANSETRON [Concomitant]
     Active Substance: ONDANSETRON
  15. EMLA [Concomitant]
     Active Substance: LIDOCAINE\PRILOCAINE
  16. VENOFER [Concomitant]
     Active Substance: IRON SUCROSE
  17. CITALOPRAM [Concomitant]
     Active Substance: CITALOPRAM HYDROBROMIDE
  18. FLUCONAZOLE [Concomitant]
     Active Substance: FLUCONAZOLE
  19. CEFUROXIME AXETIL [Concomitant]
     Active Substance: CEFUROXIME AXETIL
  20. TRIAMCINOLONE [Concomitant]
     Active Substance: TRIAMCINOLONE
  21. AZITHROMYCIN [Concomitant]
     Active Substance: AZITHROMYCIN
  22. CLAVULANATE POTASSIUM/AMOXICILLIN [Concomitant]
  23. FLUTICASONE PROPIONATE [Concomitant]
     Active Substance: FLUTICASONE PROPIONATE
  24. HYDROMORPHONE HYDROCHLORIDE [Concomitant]
     Active Substance: HYDROMORPHONE HYDROCHLORIDE
  25. CLINDAMYCIN HYDROCHLORIDE [Concomitant]
     Active Substance: CLINDAMYCIN HYDROCHLORIDE
  26. CHANTIX [Concomitant]
     Active Substance: VARENICLINE TARTRATE
  27. SULPHAMETHOXAZOLE TRIMETHOPRIM [Concomitant]
  28. ANASTROZOLE [Concomitant]
     Active Substance: ANASTROZOLE
  29. DEXAMETHASONE [Concomitant]
     Active Substance: DEXAMETHASONE
  30. METHYLPREDNISOLONE [Concomitant]
     Active Substance: METHYLPREDNISOLONE
  31. CEPHALEXIN [Concomitant]
     Active Substance: CEPHALEXIN
  32. METRONIDAZOLE [Concomitant]
     Active Substance: METRONIDAZOLE
  33. LETROZOLE [Concomitant]
     Active Substance: LETROZOLE
  34. IBUPROFEN [Concomitant]
     Active Substance: IBUPROFEN
  35. PROAIR HFA [Concomitant]
     Active Substance: ALBUTEROL SULFATE
  36. BANOPHEN [Concomitant]
     Active Substance: DIPHENHYDRAMINE HYDROCHLORIDE
  37. TAMOXIFEN CITRATE [Concomitant]
     Active Substance: TAMOXIFEN CITRATE
  38. LEVOFLOXACIN [Concomitant]
     Active Substance: LEVOFLOXACIN
  39. CALCITRIOL [Concomitant]
     Active Substance: CALCITRIOL
  40. GLIPIZIDE [Concomitant]
     Active Substance: GLIPIZIDE
  41. FUROSEMIDE [Concomitant]
     Active Substance: FUROSEMIDE
  42. CARDIZEM [Concomitant]
     Active Substance: DILTIAZEM HYDROCHLORIDE
  43. LISINOPRIL [Concomitant]
     Active Substance: LISINOPRIL
  44. FORTAMET [Concomitant]
     Active Substance: METFORMIN HYDROCHLORIDE
  45. MELOXICAM [Concomitant]
     Active Substance: MELOXICAM
  46. BENICAR [Concomitant]
     Active Substance: OLMESARTAN MEDOXOMIL
  47. SODIUM BICARBONATE [Concomitant]
     Active Substance: SODIUM BICARBONATE
  48. IODINE [Concomitant]
     Active Substance: IODINE
  49. LYRICA [Concomitant]
     Active Substance: PREGABALIN
  50. CODEINE [Concomitant]
     Active Substance: CODEINE
  51. LIDOCAINE [Concomitant]
     Active Substance: LIDOCAINE
  52. BUPIVACAINE [Concomitant]
     Active Substance: BUPIVACAINE
  53. CLINDAMYCIN [Concomitant]
     Active Substance: CLINDAMYCIN
  54. CIPROFLOXACIN [Concomitant]
     Active Substance: CIPROFLOXACIN
  55. HEPARIN [Concomitant]
     Active Substance: HEPARIN SODIUM
  56. FENTANYL [Concomitant]
     Active Substance: FENTANYL
  57. MIDAZOLAM [Concomitant]
     Active Substance: MIDAZOLAM
  58. VITAMIN B COMPLEX [Concomitant]
     Active Substance: CYANOCOBALAMIN\DEXPANTHENOL\NIACINAMIDE\PYRIDOXINE HYDROCHLORIDE\RIBOFLAVIN 5^-PHOSPHATE SODIUM\THIA
  59. ACETAMINOPHEN [Concomitant]
     Active Substance: ACETAMINOPHEN
  60. DIOVAN [Concomitant]
     Active Substance: VALSARTAN
  61. ROCURONIUM [Concomitant]
     Active Substance: ROCURONIUM BROMIDE
  62. NEPHROCAP [Concomitant]
  63. SUCCINYLCHOLINE [Concomitant]
     Active Substance: SUCCINYLCHOLINE
  64. FERROUS SULFATE [Concomitant]
     Active Substance: FERROUS SULFATE
  65. GLYCOPYRROLATE [Concomitant]
     Active Substance: GLYCOPYRROLATE
  66. NEOSTIGMINE [Concomitant]
     Active Substance: NEOSTIGMINE
  67. PROPOFOL [Concomitant]
     Active Substance: PROPOFOL
  68. GELATIN [Concomitant]
     Active Substance: GELATIN
  69. THROMBIN [Concomitant]
     Active Substance: THROMBIN
  70. PAPAVERINE [Concomitant]
     Active Substance: PAPAVERINE
  71. IODIXANOL [Concomitant]
     Active Substance: IODIXANOL
  72. KETAMINE [Concomitant]
     Active Substance: KETAMINE
  73. CEFAZOLIN [Concomitant]
     Active Substance: CEFAZOLIN
  74. EPHEDRINE [Concomitant]
     Active Substance: EPHEDRINE
  75. DIALVITE [Concomitant]
  76. PHENYLEPHRINE [Concomitant]
     Active Substance: PHENYLEPHRINE HYDROCHLORIDE
  77. CELLULOSE [Concomitant]
     Active Substance: POWDERED CELLULOSE
  78. COLACE [Concomitant]
     Active Substance: DOCUSATE SODIUM
  79. ZOSYN [Concomitant]
     Active Substance: PIPERACILLIN SODIUM\TAZOBACTAM SODIUM
  80. FOLIC ACID [Concomitant]
     Active Substance: FOLIC ACID
  81. SENNA [Concomitant]
     Active Substance: SENNA LEAF\SENNOSIDES\SENNOSIDES A AND B
  82. MORPHINE [Concomitant]
     Active Substance: MORPHINE
  83. POLYETHYLENE GLYCOL [Concomitant]
     Active Substance: POLYETHYLENE GLYCOL
  84. VITAMIN A [Concomitant]
     Active Substance: VITAMIN A
  85. HECTOROL [Concomitant]
     Active Substance: DOXERCALCIFEROL
  86. CINACALCET [Concomitant]
     Active Substance: CINACALCET
  87. FLUZONE [Concomitant]
     Active Substance: INFLUENZA A VIRUS A/CALIFORNIA/7/2009 X-179A (H1N1) ANTIGEN (FORMALDEHYDE INACTIVATED)\INFLUENZA A V
  88. DIPHENHYDRAMINE [Concomitant]
     Active Substance: DIPHENHYDRAMINE
     Indication: Pruritus
  89. CALCIUM CARBONATE\ERGOCALCIFEROL\RETINOL [Concomitant]
     Active Substance: CALCIUM CARBONATE\ERGOCALCIFEROL\RETINOL
     Indication: Hyperparathyroidism
  90. EPOGEN [Concomitant]
     Active Substance: ERYTHROPOIETIN
     Indication: End stage renal disease
  91. MIRALAX [Concomitant]
     Active Substance: POLYETHYLENE GLYCOL 3350
  92. VANCOMYCIN [Concomitant]
     Active Substance: VANCOMYCIN
  93. COREG [Concomitant]
     Active Substance: CARVEDILOL
  94. MEDROL [Concomitant]
     Active Substance: METHYLPREDNISOLONE
  95. DIALYVITE [Concomitant]
     Active Substance: ASCORBIC ACID\BIOTIN\CALCIUM PANTOTHENATE\COBALAMIN\FOLIC ACID\NIACINAMIDE\PYRIDOXINE HYDROCHLORIDE\
  96. LANSOPRAZOLE [Concomitant]
     Active Substance: LANSOPRAZOLE
  97. ELIQUIS [Concomitant]
     Active Substance: APIXABAN
  98. ENERGIX [Concomitant]

REACTIONS (7)
  - Renal failure [Not Recovered/Not Resolved]
  - Chronic kidney disease [Unknown]
  - End stage renal disease [Unknown]
  - Nephrogenic anaemia [Unknown]
  - Hyperparathyroidism secondary [Unknown]
  - Chronic kidney disease-mineral and bone disorder [Unknown]
  - Diabetic nephropathy [Unknown]

NARRATIVE: CASE EVENT DATE: 20080701
